FAERS Safety Report 19083717 (Version 1)
Quarter: 2021Q2

REPORT INFORMATION
  Report Type: Spontaneous
  Country: FR (occurrence: FR)
  Receive Date: 20210401
  Receipt Date: 20210401
  Transmission Date: 20210717
  Serious: Yes (Other)
  Sender: FDA-Public Use
  Company Number: FR-ACCORD-221311

PATIENT
  Age: 44 Year
  Sex: Female
  Weight: 109 kg

DRUGS (5)
  1. AVASTIN [Suspect]
     Active Substance: BEVACIZUMAB
     Indication: LUNG ADENOCARCINOMA
     Dosage: 25 MG / ML CONCENTRATE FOR SOLUTION FOR INFUSION
     Route: 041
     Dates: start: 20201208, end: 20201208
  2. PEMETREXED ZENTIVA [Suspect]
     Active Substance: PEMETREXED
     Indication: LUNG ADENOCARCINOMA
     Dosage: 25 MG / ML CONCENTRATE FOR SOLUTION FOR INFUSION
     Route: 041
     Dates: start: 20201208
  3. DAFALGAN [Concomitant]
     Active Substance: ACETAMINOPHEN
  4. AVAMYS [Concomitant]
     Active Substance: FLUTICASONE FUROATE
  5. CARBOPLATIN ACCORD [Suspect]
     Active Substance: CARBOPLATIN
     Indication: LUNG ADENOCARCINOMA
     Dosage: 10 MG / ML, SOLUTION FOR INFUSION
     Route: 041
     Dates: start: 20201208

REACTIONS (9)
  - Mucosal inflammation [Recovered/Resolved]
  - Epistaxis [Recovered/Resolved]
  - Tooth abscess [Unknown]
  - Rash [Unknown]
  - Visual acuity reduced [Unknown]
  - Nausea [Recovered/Resolved]
  - Omphalitis [Recovered/Resolved]
  - Furuncle [Not Recovered/Not Resolved]
  - Constipation [Recovered/Resolved]

NARRATIVE: CASE EVENT DATE: 20201209
